FAERS Safety Report 16589183 (Version 2)
Quarter: 2019Q3

REPORT INFORMATION
  Report Type: Other
  Country: SE (occurrence: SE)
  Receive Date: 20190718
  Receipt Date: 20190825
  Transmission Date: 20191004
  Serious: Yes (Other)
  Sender: FDA-Public Use
  Company Number: SE-APOTEX-2019AP018386

PATIENT
  Age: 18 Year
  Sex: Male

DRUGS (1)
  1. PAROXETINE. [Suspect]
     Active Substance: PAROXETINE
     Indication: SOCIAL ANXIETY DISORDER
     Dosage: 20 MG, QD
     Route: 065
     Dates: start: 20190430, end: 20190604

REACTIONS (5)
  - Depressive symptom [Recovered/Resolved]
  - Suicidal ideation [Recovered/Resolved]
  - Hypersomnia [Recovered/Resolved]
  - Decreased appetite [Recovered/Resolved]
  - Decreased interest [Recovered/Resolved]

NARRATIVE: CASE EVENT DATE: 201905
